FAERS Safety Report 23983762 (Version 1)
Quarter: 2024Q2

REPORT INFORMATION
  Report Type: Spontaneous
  Country: US (occurrence: US)
  Receive Date: 20240618
  Receipt Date: 20240618
  Transmission Date: 20240716
  Serious: Yes (Other)
  Sender: FDA-Public Use
  Company Number: US-BEH-2022147964

PATIENT
  Age: 20 Year
  Sex: Female

DRUGS (5)
  1. HUMATE-P [Suspect]
     Active Substance: HUMAN COAGULATION FACTOR VIII/VON WILLEBRAND FACTOR COMPLEX
     Indication: Von Willebrand^s disease
     Dosage: 1935 INTERNATIONAL UNIT, PRN
     Route: 042
     Dates: start: 20200219
  2. HUMATE-P [Suspect]
     Active Substance: HUMAN COAGULATION FACTOR VIII/VON WILLEBRAND FACTOR COMPLEX
     Dosage: 1012 INTERNATIONAL UNIT, PRN
     Route: 042
     Dates: start: 20200219
  3. HUMATE-P [Suspect]
     Active Substance: HUMAN COAGULATION FACTOR VIII/VON WILLEBRAND FACTOR COMPLEX
     Dosage: 3000 ROOF IU, EVERY 24H AS NEEDED 1200 STRENGHT
     Route: 042
     Dates: start: 202005
  4. HUMATE-P [Suspect]
     Active Substance: HUMAN COAGULATION FACTOR VIII/VON WILLEBRAND FACTOR COMPLEX
     Dosage: 3000 ROOF IU, EVERY 24H AS NEEDED 2400 STRENGHT
     Route: 042
     Dates: start: 202005
  5. HUMATE-P [Suspect]
     Active Substance: HUMAN COAGULATION FACTOR VIII/VON WILLEBRAND FACTOR COMPLEX
     Dosage: 1800 IU, TIW
     Route: 042
     Dates: start: 202005

REACTIONS (4)
  - Haemarthrosis [Unknown]
  - Haemarthrosis [Unknown]
  - Epistaxis [Unknown]
  - Epistaxis [Unknown]

NARRATIVE: CASE EVENT DATE: 20240426
